FAERS Safety Report 15038083 (Version 2)
Quarter: 2018Q2

REPORT INFORMATION
  Report Type: Spontaneous
  Country: US (occurrence: US)
  Receive Date: 20180620
  Receipt Date: 20180622
  Transmission Date: 20180711
  Serious: Yes (Other)
  Sender: FDA-Public Use
  Company Number: US-SUNOVION-2018SUN002486

PATIENT

DRUGS (1)
  1. SEEBRI [Suspect]
     Active Substance: GLYCOPYRRONIUM
     Indication: ASTHMA
     Dosage: 28.8 UG, BID
     Route: 055

REACTIONS (2)
  - Pulmonary hypertension [Unknown]
  - Product use in unapproved indication [Unknown]
